FAERS Safety Report 5988958-0 (Version None)
Quarter: 2008Q4

REPORT INFORMATION
  Report Type: 
  Country: None (occurrence: None)
  Receive Date: 20081204
  Receipt Date: 20081126
  Transmission Date: 20090506
  Serious: Yes (Hospitalization)
  Sender: FDA-Public Use
  Company Number: TPG2008A01333

PATIENT
  Age: 70 Year
  Sex: Male

DRUGS (4)
  1. COMPETACT (PIOGLITAZONE HYDROCHLORIDE,METFORMIN HYDROCHLORIDE) [Suspect]
     Indication: DIABETES MELLITUS
     Dosage: PIOGLITAZONE 30 MG/METFORMIN 1700 MG, PER ORAL
     Route: 048
  2. RIVACOR (BISOPROLOL HEMIFUMARATE) [Concomitant]
  3. CANDESARTAN CILEXETIL [Concomitant]
  4. ALLOPURINOL [Concomitant]

REACTIONS (3)
  - BLOOD CREATININE INCREASED [None]
  - BLOOD POTASSIUM INCREASED [None]
  - OEDEMA [None]
